FAERS Safety Report 8407445 (Version 3)
Quarter: 2013Q2

REPORT INFORMATION
  Report Type: Spontaneous
  Country: US (occurrence: None)
  Receive Date: 20111227
  Receipt Date: 20130107
  Transmission Date: 20140414
  Serious: Yes (Other)
  Sender: FDA-Public Use
  Company Number: PHHY2011US44768

PATIENT
  Age: 48 Year
  Sex: Male
  Weight: 90.7 kg

DRUGS (4)
  1. GILENYA [Suspect]
     Indication: MULTIPLE SCLEROSIS
     Dosage: 0.5 MG, QD, ORAL
     Route: 048
     Dates: start: 20110501
  2. VITAMIN D (ERGOCALCIFEROL) [Concomitant]
  3. FISH OIL (FISH OIL) [Concomitant]
  4. PREDNISONE (PRENDISONE) [Concomitant]

REACTIONS (5)
  - ABDOMINAL PAIN UPPER [None]
  - Vitreous floaters [None]
  - Nausea [None]
  - Headache [None]
  - Dizziness [None]
